FAERS Safety Report 21296728 (Version 1)
Quarter: 2022Q3

REPORT INFORMATION
  Report Type: Spontaneous
  Country: US (occurrence: None)
  Receive Date: 20220902
  Receipt Date: 20220902
  Transmission Date: 20221027
  Serious: Yes (Hospitalization)
  Sender: FDA-Public Use
  Company Number: None

PATIENT
  Age: 83 Year
  Sex: Female
  Weight: 77.09 kg

DRUGS (2)
  1. BEBTELOVIMAB [Suspect]
     Active Substance: BEBTELOVIMAB
     Indication: COVID-19
     Dates: start: 20220901, end: 20220901
  2. bebtelivomab [Concomitant]
     Dates: start: 20220901, end: 20220901

REACTIONS (3)
  - Hypertension [None]
  - Atrial fibrillation [None]
  - Respiratory rate increased [None]

NARRATIVE: CASE EVENT DATE: 20220901
